FAERS Safety Report 25850624 (Version 1)
Quarter: 2025Q3

REPORT INFORMATION
  Report Type: Spontaneous
  Country: EU (occurrence: EU)
  Receive Date: 20250926
  Receipt Date: 20250926
  Transmission Date: 20251021
  Serious: Yes (Hospitalization)
  Sender: ABBVIE
  Company Number: EU-AMGEN-GRCSP2025183230

PATIENT
  Sex: Female

DRUGS (7)
  1. ADALIMUMAB [Suspect]
     Active Substance: ADALIMUMAB
     Indication: Erythrodermic psoriasis
     Route: 065
  2. ACITRETIN [Concomitant]
     Active Substance: ACITRETIN
     Indication: Erythrodermic psoriasis
     Route: 065
  3. METHOTREXATE [Concomitant]
     Active Substance: METHOTREXATE
     Indication: Erythrodermic psoriasis
     Route: 065
  4. INFLIXIMAB [Concomitant]
     Active Substance: INFLIXIMAB
     Indication: Erythrodermic psoriasis
     Route: 065
  5. BRODALUMAB [Concomitant]
     Active Substance: BRODALUMAB
     Indication: Erythrodermic psoriasis
     Route: 065
  6. SECUKINUMAB [Concomitant]
     Active Substance: SECUKINUMAB
     Indication: Erythrodermic psoriasis
     Route: 065
  7. CYCLOSPORINE [Concomitant]
     Active Substance: CYCLOSPORINE
     Indication: Erythrodermic psoriasis
     Route: 065

REACTIONS (2)
  - Erythrodermic psoriasis [Unknown]
  - Drug ineffective [Unknown]
